FAERS Safety Report 18155001 (Version 1)
Quarter: 2020Q3

REPORT INFORMATION
  Report Type: Report from Study
  Country: None (occurrence: US)
  Receive Date: 20200817
  Receipt Date: 20200817
  Transmission Date: 20201103
  Serious: Yes (Other)
  Sender: FDA-Public Use
  Company Number: US-VIFOR (INTERNATIONAL) INC.-VIT-2020-08612

PATIENT
  Sex: Male

DRUGS (1)
  1. VELPHORO [Suspect]
     Active Substance: SUCROFERRIC OXYHYDROXIDE
     Indication: BLOOD PHOSPHORUS
     Dosage: WITH MEALS
     Route: 048
     Dates: start: 202003, end: 2020

REACTIONS (2)
  - Therapy cessation [Unknown]
  - Transplant [Unknown]

NARRATIVE: CASE EVENT DATE: 2020
